FAERS Safety Report 11723055 (Version 1)
Quarter: 2015Q4

REPORT INFORMATION
  Report Type: Spontaneous
  Country: JP (occurrence: JP)
  Receive Date: 20151111
  Receipt Date: 20151111
  Transmission Date: 20160304
  Serious: Yes (Hospitalization, Other)
  Sender: FDA-Public Use
  Company Number: JP-TEVA-603552ISR

PATIENT
  Age: 78 Year
  Sex: Female

DRUGS (4)
  1. NITRAZEPAM [Suspect]
     Active Substance: NITRAZEPAM
     Indication: MAJOR DEPRESSION
     Dosage: 5 MILLIGRAM DAILY; FOR MORE THAN 6 MONTHS
  2. RISPERIDONE. [Suspect]
     Active Substance: RISPERIDONE
     Indication: MAJOR DEPRESSION
     Dosage: 1 MILLIGRAM DAILY; FOR MORE THAN 6 MONTHS
  3. MIRTAZAPINE. [Concomitant]
     Active Substance: MIRTAZAPINE
     Indication: MAJOR DEPRESSION
     Dosage: 30 MILLIGRAM DAILY;
  4. ESCITALOPRAM [Suspect]
     Active Substance: ESCITALOPRAM OXALATE
     Indication: MAJOR DEPRESSION
     Dosage: 10 MILLIGRAM DAILY; FOR MORE THAN 6 MONTHS

REACTIONS (7)
  - Delusion [Unknown]
  - Serotonin syndrome [Recovered/Resolved]
  - Pyrexia [Recovered/Resolved]
  - Aggression [Unknown]
  - Hallucination [Unknown]
  - Bradykinesia [Recovered/Resolved]
  - Somnolence [Recovered/Resolved]
